FAERS Safety Report 6864372-0 (Version None)
Quarter: 2010Q3

REPORT INFORMATION
  Report Type: 
  Country: None (occurrence: None)
  Receive Date: 20100721
  Receipt Date: 20080521
  Transmission Date: 20110219
  Serious: Yes (Other)
  Sender: FDA-Public Use
  Company Number: US-PFIZER INC-2008025609

PATIENT
  Sex: Female
  Weight: 55 kg

DRUGS (1)
  1. CHANTIX [Suspect]
     Indication: SMOKING CESSATION THERAPY
     Dates: start: 20070801

REACTIONS (11)
  - ABNORMAL BEHAVIOUR [None]
  - ABNORMAL DREAMS [None]
  - AMNESIA [None]
  - ARTERIAL OCCLUSIVE DISEASE [None]
  - DELUSION [None]
  - DEPRESSION [None]
  - EYE DISORDER [None]
  - FEELING ABNORMAL [None]
  - HALLUCINATION [None]
  - MENTAL DISORDER [None]
  - SENSATION OF HEAVINESS [None]
